FAERS Safety Report 16700744 (Version 1)
Quarter: 2019Q3

REPORT INFORMATION
  Report Type: Spontaneous
  Country: DE (occurrence: DE)
  Receive Date: 20190814
  Receipt Date: 20190814
  Transmission Date: 20191004
  Serious: Yes (Hospitalization)
  Sender: FDA-Public Use
  Company Number: DE-ACCORD-151270

PATIENT
  Age: 63 Year
  Sex: Male

DRUGS (12)
  1. IRINOTECAN [Suspect]
     Active Substance: IRINOTECAN
     Indication: PRODUCT USED FOR UNKNOWN INDICATION
     Dosage: 340 MG, MOST RECENTLY 07-MAR-2018
  2. LORAZEPAM. [Concomitant]
     Active Substance: LORAZEPAM
     Dosage: 1 MG, 0-0-0-1 IF NEEDED
  3. FENTANYL. [Concomitant]
     Active Substance: FENTANYL
     Dosage: 200 UG,IF REQUIRED
  4. FLUOROURACIL. [Suspect]
     Active Substance: FLUOROURACIL
     Indication: PRODUCT USED FOR UNKNOWN INDICATION
     Dosage: 4500 MG, MOST RECENTLY 07-MAR-2018
  5. MACROGOL/MACROGOL STEARATE [Concomitant]
     Dosage: 13.125, 0.351, 0.047 G, 1-0-1-0
  6. FOLINIC ACID [Concomitant]
     Active Substance: LEUCOVORIN
     Dosage: 750 MG, MOST RECENTLY 07-MAR-2018
  7. METAMIZOLE SODIUM [Concomitant]
     Active Substance: METAMIZOLE SODIUM
     Dosage: 500 MG, 1-1-1-1
  8. FLUOROURACIL. [Suspect]
     Active Substance: FLUOROURACIL
     Indication: PRODUCT USED FOR UNKNOWN INDICATION
     Dosage: 750 MG, MOST RECENTLY 07-MAR-2018
  9. OXALIPLATIN. [Suspect]
     Active Substance: OXALIPLATIN
     Indication: PRODUCT USED FOR UNKNOWN INDICATION
     Dosage: 150 MG, MOST RECENTLY 07-MAR-2018
  10. HYDROMORPHONE/HYDROMORPHONE HYDROCHLORIDE [Concomitant]
     Dosage: 8 MG, 1-1-1-0
  11. LACTULOSE. [Concomitant]
     Active Substance: LACTULOSE
     Dosage: 1-0-1-0
  12. ONDANSETRON [Concomitant]
     Active Substance: ONDANSETRON
     Dosage: IF NEEDED

REACTIONS (4)
  - Abdominal pain upper [Unknown]
  - Dyspepsia [Unknown]
  - Pain [Unknown]
  - Vomiting [Unknown]
